FAERS Safety Report 9994652 (Version 1)
Quarter: 2014Q1

REPORT INFORMATION
  Report Type: Spontaneous
  Country: US (occurrence: US)
  Receive Date: 20140311
  Receipt Date: 20140311
  Transmission Date: 20141002
  Serious: Yes (Hospitalization)
  Sender: FDA-Public Use
  Company Number: US-RANBAXY-2014US-78809

PATIENT
  Age: 51 Year
  Sex: Male
  Weight: 85 kg

DRUGS (1)
  1. LISINOPRIL [Suspect]
     Indication: PRODUCT USED FOR UNKNOWN INDICATION
     Dosage: 27 TABLETS OVER A PERIOD OF 3 OR FEWER DAYS (3.18MG/KG BODY WEIGHT)
     Route: 065

REACTIONS (10)
  - Overdose [Recovered/Resolved]
  - Confusional state [Recovered/Resolved]
  - Renal failure acute [Recovered/Resolved]
  - Metabolic acidosis [Recovered/Resolved]
  - Hyperkalaemia [Recovered/Resolved]
  - Speech disorder [Recovered/Resolved]
  - Rhabdomyolysis [Recovered/Resolved]
  - Multi-organ disorder [Recovered/Resolved]
  - Hallucination, visual [Recovered/Resolved]
  - Incoherent [Recovered/Resolved]
